FAERS Safety Report 13041773 (Version 1)
Quarter: 2016Q4

REPORT INFORMATION
  Report Type: Spontaneous
  Country: US (occurrence: US)
  Receive Date: 20161219
  Receipt Date: 20161219
  Transmission Date: 20170207
  Serious: No
  Sender: FDA-Public Use
  Company Number: US-ROCHE-1083172

PATIENT
  Age: 58 Year
  Sex: Male
  Weight: 72.1 kg

DRUGS (3)
  1. ZELBORAF [Suspect]
     Active Substance: VEMURAFENIB
     Indication: METASTATIC MALIGNANT MELANOMA
     Route: 048
     Dates: start: 20120608, end: 20120625
  2. PAROXETINE. [Concomitant]
     Active Substance: PAROXETINE
     Indication: PRODUCT USED FOR UNKNOWN INDICATION
     Route: 065
  3. CELEBREX [Concomitant]
     Active Substance: CELECOXIB
     Indication: PRODUCT USED FOR UNKNOWN INDICATION
     Route: 065

REACTIONS (8)
  - Rash [Recovering/Resolving]
  - Dysphagia [Unknown]
  - Vomiting [Recovered/Resolved]
  - Adverse drug reaction [Unknown]
  - Insomnia [Unknown]
  - Nausea [Recovered/Resolved]
  - Sunburn [Unknown]
  - Swelling [Unknown]

NARRATIVE: CASE EVENT DATE: 20120609
